FAERS Safety Report 12297003 (Version 1)
Quarter: 2016Q2

REPORT INFORMATION
  Report Type: Spontaneous
  Country: US (occurrence: US)
  Receive Date: 20160422
  Receipt Date: 20160422
  Transmission Date: 20160815
  Serious: No
  Sender: FDA-Public Use
  Company Number: US-SA-2016SA033015

PATIENT
  Age: 48 Year
  Sex: Male

DRUGS (2)
  1. AFREZZA [Suspect]
     Active Substance: INSULIN HUMAN
     Indication: TYPE 1 DIABETES MELLITUS
     Dosage: DOSE: 4-12 UNITS
     Route: 055
  2. AFREZZA [Suspect]
     Active Substance: INSULIN HUMAN
     Indication: TYPE 1 DIABETES MELLITUS
     Dosage: DOSE: 4-12 UNITS
     Route: 055

REACTIONS (5)
  - Wrong technique in product usage process [None]
  - Blood glucose increased [Unknown]
  - Drug ineffective [Unknown]
  - Product reconstitution issue [None]
  - Product physical consistency issue [None]
